FAERS Safety Report 13087703 (Version 2)
Quarter: 2017Q2

REPORT INFORMATION
  Report Type: Spontaneous
  Country: JP (occurrence: JP)
  Receive Date: 20170105
  Receipt Date: 20170405
  Transmission Date: 20170830
  Serious: Yes (Hospitalization, Disabling, Other)
  Sender: FDA-Public Use
  Company Number: JP-ASTELLAS-2016JP022890

PATIENT
  Age: 73 Year
  Sex: Female
  Weight: 38 kg

DRUGS (10)
  1. BONOTEO [Concomitant]
     Active Substance: MINODRONIC ACID
     Indication: OSTEOPOROSIS
     Route: 048
     Dates: start: 2009
  2. TRANSAMIN [Concomitant]
     Active Substance: TRANEXAMIC ACID
     Indication: BRONCHIECTASIS
  3. SELBEX [Concomitant]
     Active Substance: TEPRENONE
     Indication: GASTROOESOPHAGEAL REFLUX DISEASE
     Dosage: 0.5 G, TWICE DAILY
     Route: 048
     Dates: start: 2009
  4. PROGRAF [Suspect]
     Active Substance: TACROLIMUS\TACROLIMUS ANHYDROUS
     Indication: RHEUMATOID ARTHRITIS
     Dosage: 0.5 MG, ONCE DAILY
     Route: 048
     Dates: start: 2009, end: 20161120
  5. TRANSAMIN [Concomitant]
     Active Substance: TRANEXAMIC ACID
     Indication: MIDDLE LOBE SYNDROME
     Route: 048
     Dates: start: 2009
  6. LOXONIN [Concomitant]
     Active Substance: LOXOPROFEN SODIUM
     Indication: RHEUMATOID ARTHRITIS
     Route: 048
     Dates: start: 2009
  7. LANSOPRAZOLE. [Concomitant]
     Active Substance: LANSOPRAZOLE
     Indication: GASTROOESOPHAGEAL REFLUX DISEASE
     Route: 048
     Dates: start: 2009
  8. MUCODYNE [Concomitant]
     Active Substance: CARBOCYSTEINE
     Indication: MIDDLE LOBE SYNDROME
     Route: 048
     Dates: start: 2009
  9. MUCODYNE [Concomitant]
     Active Substance: CARBOCYSTEINE
     Indication: BRONCHIECTASIS
  10. PROGRAF [Suspect]
     Active Substance: TACROLIMUS\TACROLIMUS ANHYDROUS
     Indication: RHEUMATOID ARTHRITIS
     Route: 048
     Dates: start: 2009, end: 20161120

REACTIONS (1)
  - Diffuse large B-cell lymphoma [Unknown]

NARRATIVE: CASE EVENT DATE: 20161122
